FAERS Safety Report 12669018 (Version 1)
Quarter: 2016Q3

REPORT INFORMATION
  Report Type: Spontaneous
  Country: US (occurrence: US)
  Receive Date: 20160819
  Receipt Date: 20160819
  Transmission Date: 20161109
  Serious: Yes (Other)
  Sender: FDA-Public Use
  Company Number: US-JNJFOC-20160810779

PATIENT
  Sex: Female

DRUGS (1)
  1. SIMPONI ARIA [Suspect]
     Active Substance: GOLIMUMAB
     Indication: RHEUMATOID ARTHRITIS
     Dosage: 2MG/KG/ VIAL/ 2MG/KG/ EVERY 8 WEEKS
     Route: 042
     Dates: start: 2015

REACTIONS (2)
  - Type IV hypersensitivity reaction [Unknown]
  - Cellulitis [Recovering/Resolving]
